FAERS Safety Report 24043877 (Version 2)
Quarter: 2024Q3

REPORT INFORMATION
  Report Type: Spontaneous
  Country: US (occurrence: US)
  Receive Date: 20240703
  Receipt Date: 20240716
  Transmission Date: 20241017
  Serious: No
  Sender: Haleon PLC
  Company Number: US-HALEON-2184962

PATIENT

DRUGS (1)
  1. ALLI [Suspect]
     Active Substance: ORLISTAT
     Indication: Weight control
     Dosage: EXPDATE:20260531EXPDATE:20260531

REACTIONS (2)
  - Inappropriate schedule of product administration [Unknown]
  - Product complaint [Unknown]
